FAERS Safety Report 8825505 (Version 1)
Quarter: 2012Q4

REPORT INFORMATION
  Report Type: 
  Country: CN (occurrence: CN)
  Receive Date: 20121004
  Receipt Date: 20121004
  Transmission Date: 20130627
  Serious: Yes (Hospitalization)
  Sender: FDA-Public Use
  Company Number: CN-JNJFOC-20121001132

PATIENT
  Sex: Female

DRUGS (2)
  1. TYLENOL [Suspect]
     Indication: NASOPHARYNGITIS
     Route: 048
     Dates: start: 20091209, end: 20091211
  2. TYLENOL [Suspect]
     Indication: PYREXIA
     Route: 048
     Dates: start: 20091209, end: 20091211

REACTIONS (2)
  - Rash maculo-papular [Recovering/Resolving]
  - Pyrexia [Recovering/Resolving]
